FAERS Safety Report 17561570 (Version 2)
Quarter: 2020Q1

REPORT INFORMATION
  Report Type: Report from Study
  Country: US (occurrence: US)
  Receive Date: 20200319
  Receipt Date: 20200326
  Transmission Date: 20200409
  Serious: Yes (Other)
  Sender: FDA-Public Use
  Company Number: US-GILEAD-2020-0455017

PATIENT
  Age: 38 Year
  Sex: Female

DRUGS (2)
  1. AMBRISENTAN [Suspect]
     Active Substance: AMBRISENTAN
     Indication: PULMONARY HYPERTENSION
     Dosage: 10 MG, QD
     Route: 048
     Dates: start: 20180913
  2. TADALAFIL. [Concomitant]
     Active Substance: TADALAFIL

REACTIONS (5)
  - Dyspnoea [Unknown]
  - Chest pain [Unknown]
  - Syncope [Recovered/Resolved]
  - Pulmonary hypertension [Unknown]
  - Palpitations [Unknown]

NARRATIVE: CASE EVENT DATE: 20200228
